FAERS Safety Report 5832134-9 (Version None)
Quarter: 2008Q3

REPORT INFORMATION
  Report Type: 
  Country: None (occurrence: None)
  Receive Date: 20080731
  Receipt Date: 20080731
  Transmission Date: 20090109
  Serious: Yes (Life-Threatening)
  Sender: FDA-Public Use
  Company Number: None

PATIENT
  Age: 59 Year
  Sex: Male
  Weight: 100 kg

DRUGS (16)
  1. BUMINATE 5% [Suspect]
     Indication: FLUID REPLACEMENT
     Dosage: 250ML X2 IV
     Route: 042
     Dates: start: 20080718, end: 20080718
  2. BUMINATE 5% [Suspect]
     Indication: INTRAOPERATIVE CARE
     Dosage: 250ML X2 IV
     Route: 042
     Dates: start: 20080718, end: 20080718
  3. BENAZEPRIL HYDROCHLORIDE [Concomitant]
  4. FUROSEMIDE [Concomitant]
  5. ATENOLOL [Concomitant]
  6. DESIPRAMINE HCL [Concomitant]
  7. DOCUSATE [Concomitant]
  8. MS CONTIN [Concomitant]
  9. PERCOCET [Concomitant]
  10. BACLOFEN [Concomitant]
  11. TERAZOSIN HCL [Concomitant]
  12. GABAPENTIN [Concomitant]
  13. IBUPROFEN TABLETS [Concomitant]
  14. FENTANYL [Concomitant]
  15. PROPOFOL [Concomitant]
  16. SEVOFLURANE [Concomitant]

REACTIONS (2)
  - BLOOD PRESSURE SYSTOLIC DECREASED [None]
  - PHARMACEUTICAL PRODUCT COMPLAINT [None]
